FAERS Safety Report 4860087-9 (Version None)
Quarter: 2005Q4

REPORT INFORMATION
  Report Type: 
  Country: None (occurrence: None)
  Receive Date: 20051215
  Receipt Date: 20051205
  Transmission Date: 20060501
  Serious: Yes (Hospitalization, Other)
  Sender: FDA-Public Use
  Company Number: 2005164037

PATIENT
  Sex: Female

DRUGS (2)
  1. CETIRIZINE/PSEUDOEPHEDRINE (PSEUDOEPHEDRINE, CETIRIZINE) [Suspect]
     Indication: NASOPHARYNGITIS
     Dates: start: 20001201
  2. CORTISONE ACETATE [Concomitant]

REACTIONS (8)
  - ABDOMINAL PAIN [None]
  - BURNING SENSATION [None]
  - CONTRAINDICATION TO MEDICAL TREATMENT [None]
  - IMMUNE SYSTEM DISORDER [None]
  - PSORIASIS [None]
  - RASH ERYTHEMATOUS [None]
  - SWELLING FACE [None]
  - UTERINE CANCER [None]
